FAERS Safety Report 18484984 (Version 1)
Quarter: 2020Q4

REPORT INFORMATION
  Report Type: Spontaneous
  Country: US (occurrence: US)
  Receive Date: 20201109
  Receipt Date: 20201109
  Transmission Date: 20210114
  Serious: Yes (Hospitalization)
  Sender: FDA-Public Use
  Company Number: None

PATIENT
  Age: 61 Year
  Sex: Male

DRUGS (1)
  1. KESIMPTA [Suspect]
     Active Substance: OFATUMUMAB

REACTIONS (11)
  - Device defective [None]
  - Aggression [None]
  - Blood pressure increased [None]
  - Agitation [None]
  - Musculoskeletal stiffness [None]
  - Pyrexia [None]
  - Patient uncooperative [None]
  - Pain in extremity [None]
  - Heart rate increased [None]
  - Mental status changes [None]
  - Urinary tract infection [None]

NARRATIVE: CASE EVENT DATE: 20201102
